FAERS Safety Report 9029399 (Version 3)
Quarter: 2013Q1

REPORT INFORMATION
  Report Type: Report from Study
  Country: US (occurrence: US)
  Receive Date: 20130125
  Receipt Date: 20130304
  Transmission Date: 20140127
  Serious: Yes (Other)
  Sender: FDA-Public Use
  Company Number: US-BRISTOL-MYERS SQUIBB COMPANY-17049479

PATIENT
  Age: 78 Year
  Sex: Male

DRUGS (13)
  1. DASATINIB [Suspect]
     Indication: PROSTATE CANCER
     Route: 048
     Dates: start: 20081016, end: 20121003
  2. PREDNISONE [Suspect]
     Indication: PROSTATE CANCER
     Route: 048
     Dates: start: 20081016
  3. ALBUTEROL SULFATE [Concomitant]
     Indication: DYSPNOEA
     Dosage: STRENGTH:2.5MG
     Route: 055
  4. ATROVENT INHALER [Concomitant]
     Indication: DYSPNOEA
     Route: 055
  5. CALCIUM + VITAMIN D [Concomitant]
     Indication: SUPPLEMENTATION THERAPY
     Route: 048
  6. CENTRUM SILVER [Concomitant]
     Indication: SUPPLEMENTATION THERAPY
     Dosage: 1 DF:1 TAB
     Route: 048
  7. HYDROCODONE BITARTRATE [Concomitant]
     Indication: PAIN
     Dosage: 1 DF:5/500MG
     Route: 048
  8. IMODIUM [Concomitant]
     Indication: DIARRHOEA
     Dosage: 1 DF:1 TAB
     Route: 048
  9. LASIX [Concomitant]
     Dosage: STRENGH:1/2 TABS
     Route: 048
  10. LISINOPRIL [Concomitant]
     Indication: BLOOD PRESSURE ABNORMAL
     Route: 048
  11. NICOTINE [Concomitant]
     Indication: EX-TOBACCO USER
     Dosage: 1 DF:2MG/PER 2 HR(LOZENGE WITHIN MOUTH OR CHEECKS),21MG/DAY(PATCH).
  12. POTASSIUM CHLORIDE [Concomitant]
     Route: 048
  13. DENOSUMAB [Concomitant]
     Indication: BONE CANCER
     Dosage: XGEVA-DRUG?LAST DOSE:03OCT12
     Route: 058

REACTIONS (1)
  - Squamous cell carcinoma [Not Recovered/Not Resolved]
